FAERS Safety Report 8763298 (Version 2)
Quarter: 2012Q4

REPORT INFORMATION
  Report Type: 
  Country: US (occurrence: US)
  Receive Date: 20120830
  Receipt Date: 20121220
  Transmission Date: 20130627
  Serious: No
  Sender: FDA-Public Use
  Company Number: US-PFIZER INC-2012210902

PATIENT
  Age: 48 Year
  Sex: Female

DRUGS (2)
  1. INLYTA [Suspect]
     Indication: RENAL CANCER
     Dosage: 7 mg, 2x/day
     Dates: start: 20120727
  2. INLYTA [Suspect]
     Dosage: 5 mg, UNK
     Dates: start: 20120427

REACTIONS (5)
  - Disease progression [Unknown]
  - Renal cancer [Unknown]
  - Decreased appetite [Unknown]
  - Nausea [Unknown]
  - Weight decreased [Unknown]
